FAERS Safety Report 15319850 (Version 1)
Quarter: 2018Q3

REPORT INFORMATION
  Report Type: Spontaneous
  Country: FR (occurrence: FR)
  Receive Date: 20180827
  Receipt Date: 20180827
  Transmission Date: 20181010
  Serious: Yes (Other)
  Sender: FDA-Public Use
  Company Number: FR-TEVA-2018-FR-944505

PATIENT
  Age: 32 Year
  Sex: Male
  Weight: 55 kg

DRUGS (3)
  1. ESCITALOPRAM [Suspect]
     Active Substance: ESCITALOPRAM OXALATE
     Indication: DEPRESSION
     Dosage: 20 MILLIGRAM DAILY;
     Route: 048
     Dates: start: 20180126, end: 20180704
  2. DOLIPRANE [Concomitant]
     Active Substance: ACETAMINOPHEN
     Indication: PAIN
     Route: 048
     Dates: start: 201806
  3. FLUOXETINE ZENTIVA 20 MG, COMPRIM? DISPERSIBLE S?CABLE [Concomitant]
     Indication: DEPRESSION
     Route: 048
     Dates: start: 20180704

REACTIONS (7)
  - Pyrexia [Recovering/Resolving]
  - Vertigo [Recovering/Resolving]
  - Hepatitis infectious mononucleosis [Recovered/Resolved]
  - Headache [Recovering/Resolving]
  - Hepatocellular injury [Recovered/Resolved]
  - Myalgia [Recovering/Resolving]
  - Fatigue [Recovering/Resolving]

NARRATIVE: CASE EVENT DATE: 20180618
